FAERS Safety Report 9721720 (Version 1)
Quarter: 2013Q4

REPORT INFORMATION
  Report Type: Spontaneous
  Country: US (occurrence: US)
  Receive Date: 20131201
  Receipt Date: 20131201
  Transmission Date: 20140711
  Serious: No
  Sender: FDA-Public Use
  Company Number: US-ABBVIE-13P-163-1152272-00

PATIENT
  Sex: Male
  Weight: 190.68 kg

DRUGS (5)
  1. ANDROGEL [Suspect]
     Indication: BLOOD TESTOSTERONE DECREASED
     Dosage: 81 MILLIGRAMS DAILY
     Route: 061
     Dates: start: 2012, end: 201308
  2. ANDROGEL [Suspect]
     Dosage: 40.5 MG IN THE MORNING AND 40.5 MG IN THE EVENING
     Route: 061
     Dates: start: 20130923
  3. DIOVAN [Concomitant]
     Indication: HYPERTENSION
  4. ASPIRIN [Concomitant]
     Indication: CARDIOVASCULAR EVENT PROPHYLAXIS
  5. LIPITOR [Concomitant]
     Indication: BLOOD CHOLESTEROL INCREASED

REACTIONS (3)
  - Wrong technique in drug usage process [Unknown]
  - Acne [Not Recovered/Not Resolved]
  - Drug ineffective [Not Recovered/Not Resolved]
